FAERS Safety Report 16038453 (Version 1)
Quarter: 2019Q1

REPORT INFORMATION
  Report Type: Report from Study
  Country: CA (occurrence: CA)
  Receive Date: 20190305
  Receipt Date: 20190305
  Transmission Date: 20190418
  Serious: Yes (Hospitalization)
  Sender: FDA-Public Use
  Company Number: CA-SHIRE-CA201907042

PATIENT

DRUGS (1)
  1. IDURSULFASE [Suspect]
     Active Substance: IDURSULFASE
     Indication: MUCOPOLYSACCHARIDOSIS II
     Dosage: 18.5 MILLIGRAM, 1X/WEEK
     Route: 065
     Dates: start: 20080403

REACTIONS (1)
  - Nervousness [Recovering/Resolving]

NARRATIVE: CASE EVENT DATE: 20190225
